FAERS Safety Report 11088157 (Version 1)
Quarter: 2015Q2

REPORT INFORMATION
  Report Type: Spontaneous
  Country: US (occurrence: US)
  Receive Date: 20150504
  Receipt Date: 20150504
  Transmission Date: 20150821
  Serious: Yes (Other)
  Sender: FDA-Public Use
  Company Number: US-TEVA-559380USA

PATIENT
  Age: 53 Year
  Sex: Male

DRUGS (1)
  1. DEFEROXAMINE [Suspect]
     Active Substance: DEFEROXAMINE\DEFEROXAMINE MESYLATE
     Indication: IRON OVERLOAD
     Route: 065

REACTIONS (1)
  - Maculopathy [Recovering/Resolving]
